FAERS Safety Report 8505140-3 (Version None)
Quarter: 2012Q3

REPORT INFORMATION
  Report Type: 
  Country: None (occurrence: None)
  Receive Date: 20120712
  Receipt Date: 20120706
  Transmission Date: 20120928
  Serious: Yes (Death)
  Sender: FDA-Public Use
  Company Number: RS-CELGENEUS-308-C5013-12070637

PATIENT

DRUGS (1)
  1. LENALIDOMIDE [Suspect]
     Route: 048

REACTIONS (1)
  - CARDIAC ARREST [None]
